FAERS Safety Report 6441684-6 (Version None)
Quarter: 2009Q4

REPORT INFORMATION
  Report Type: 
  Country: None (occurrence: None)
  Receive Date: 20091113
  Receipt Date: 20091113
  Transmission Date: 20100525
  Serious: Yes (Other)
  Sender: FDA-Public Use
  Company Number: None

PATIENT
  Age: 62 Year
  Sex: Female
  Weight: 100 kg

DRUGS (1)
  1. AVELOX [Suspect]
     Indication: SINUSITIS
     Dosage: 400MG AVELOX 1
     Dates: start: 20091106, end: 20091110

REACTIONS (25)
  - AGITATION [None]
  - ANXIETY [None]
  - ASTHENIA [None]
  - BURNING SENSATION [None]
  - CHILLS [None]
  - DIZZINESS [None]
  - DYSPNOEA [None]
  - DYSURIA [None]
  - FAECES PALE [None]
  - GAIT DISTURBANCE [None]
  - HEPATIC PAIN [None]
  - HOT FLUSH [None]
  - INFLAMMATION [None]
  - INSOMNIA [None]
  - INTRACRANIAL PRESSURE INCREASED [None]
  - MOVEMENT DISORDER [None]
  - MUSCLE TIGHTNESS [None]
  - MYALGIA [None]
  - NERVOUS SYSTEM DISORDER [None]
  - PAIN [None]
  - RENAL IMPAIRMENT [None]
  - RESTLESSNESS [None]
  - SOMNOLENCE [None]
  - SWELLING [None]
  - TENDON DISORDER [None]
